FAERS Safety Report 9095410 (Version 2)
Quarter: 2013Q1

REPORT INFORMATION
  Report Type: Spontaneous
  Country: IT (occurrence: IT)
  Receive Date: 20130220
  Receipt Date: 20130225
  Transmission Date: 20140127
  Serious: Yes (Death)
  Sender: FDA-Public Use
  Company Number: PHHY2013IT016119

PATIENT
  Age: 73 Year
  Sex: Female

DRUGS (6)
  1. VOLTAREN [Suspect]
     Indication: MYALGIA
     Dosage: 2 DF, DAILY
     Route: 030
     Dates: start: 20130120, end: 20130126
  2. METFORMIN [Concomitant]
     Route: 048
  3. TRIATEC [Concomitant]
     Route: 048
  4. HALCION [Concomitant]
     Route: 048
  5. AMARYL [Concomitant]
     Route: 048
  6. GOLTOR [Concomitant]

REACTIONS (1)
  - Haemolytic anaemia [Fatal]
